FAERS Safety Report 25267613 (Version 2)
Quarter: 2025Q3

REPORT INFORMATION
  Report Type: Spontaneous
  Country: CN (occurrence: CN)
  Receive Date: 20250505
  Receipt Date: 20250911
  Transmission Date: 20251020
  Serious: Yes (Hospitalization, Other)
  Sender: CHEPLAPHARM
  Company Number: CN-CHEPLA-2025005615

PATIENT
  Age: 11 Year
  Sex: Male

DRUGS (9)
  1. VALGANCICLOVIR [Suspect]
     Active Substance: VALGANCICLOVIR
     Indication: Infection prophylaxis
  2. GANCICLOVIR [Suspect]
     Active Substance: GANCICLOVIR
     Indication: Cytomegalovirus viraemia
     Route: 042
     Dates: start: 20240419
  3. PIPERACILLIN [Suspect]
     Active Substance: PIPERACILLIN
     Indication: Infection prophylaxis
  4. FLUCONAZOLE [Suspect]
     Active Substance: FLUCONAZOLE
     Indication: Infection prophylaxis
  5. FOSCARNET [Suspect]
     Active Substance: FOSCARNET
     Indication: Cytomegalovirus viraemia
     Dates: start: 20240514
  6. MARIBAVIR [Suspect]
     Active Substance: MARIBAVIR
     Indication: Cytomegalovirus viraemia
     Dosage: DAILY DOSE: 20 MILLIGRAM/KG
     Dates: start: 20240528
  7. TACROLIMUS [Concomitant]
     Active Substance: TACROLIMUS
     Indication: Immunosuppressant drug therapy
  8. MIZORIBINE [Concomitant]
     Active Substance: MIZORIBINE
     Indication: Immunosuppressant drug therapy
  9. METHYLPREDNISOLONE [Concomitant]
     Active Substance: METHYLPREDNISOLONE
     Indication: Immunosuppressant drug therapy

REACTIONS (4)
  - Interstitial lung disease [Unknown]
  - Myelosuppression [Recovered/Resolved]
  - Drug resistance [Unknown]
  - Product use in unapproved indication [Recovered/Resolved]
